FAERS Safety Report 9255922 (Version 1)
Quarter: 2013Q2

REPORT INFORMATION
  Report Type: Spontaneous
  Country: CA (occurrence: CA)
  Receive Date: 20130425
  Receipt Date: 20130425
  Transmission Date: 20140414
  Serious: Yes (Death, Hospitalization)
  Sender: FDA-Public Use
  Company Number: CA-B.I. PHARMACEUTICALS,INC./RIDGEFIELD-2013-CN-00695CN

PATIENT
  Age: 89 Year
  Sex: Male

DRUGS (5)
  1. PRADAXA [Suspect]
     Indication: ATRIAL FIBRILLATION
     Dosage: 220 MG
     Dates: start: 20120523
  2. COMBIVENT [Concomitant]
  3. LEVEMIR [Concomitant]
  4. DIAMICRON [Concomitant]
  5. LASIX [Concomitant]

REACTIONS (2)
  - Cardiac failure congestive [Fatal]
  - Renal failure [Unknown]
